FAERS Safety Report 9495354 (Version 2)
Quarter: 2013Q4

REPORT INFORMATION
  Report Type: Spontaneous
  Country: FR (occurrence: FR)
  Receive Date: 20130903
  Receipt Date: 20131023
  Transmission Date: 20140711
  Serious: Yes (Hospitalization)
  Sender: FDA-Public Use
  Company Number: FR-ROCHE-1269562

PATIENT
  Age: 49 Year
  Sex: Female

DRUGS (8)
  1. ZELBORAF [Suspect]
     Indication: MALIGNANT MELANOMA
     Route: 048
     Dates: start: 20121015
  2. DEPAKOTE [Suspect]
     Indication: DEPRESSION
     Route: 048
     Dates: start: 200903
  3. DEPAKOTE [Suspect]
     Indication: MENTAL DISORDER
  4. DEXERYL (FRANCE) [Suspect]
     Indication: MALIGNANT MELANOMA
     Route: 065
  5. MUPHORAN [Suspect]
     Indication: MALIGNANT MELANOMA
     Route: 051
     Dates: start: 20130418
  6. MUPHORAN [Suspect]
     Dosage: CYCLE NUMBER 2
     Route: 051
     Dates: start: 20130510
  7. MUPHORAN [Suspect]
     Dosage: CYCLE NUMBER 3
     Route: 051
     Dates: start: 20130617
  8. MUPHORAN [Suspect]
     Dosage: CYCLE NUMBER 3
     Route: 051
     Dates: start: 20130705

REACTIONS (3)
  - Anaemia [Unknown]
  - Thrombocytopenia [Unknown]
  - Neutropenia [Recovered/Resolved]
